FAERS Safety Report 6655797-7 (Version None)
Quarter: 2010Q1

REPORT INFORMATION
  Report Type: 
  Country: None (occurrence: None)
  Receive Date: 20100329
  Receipt Date: 20100317
  Transmission Date: 20100710
  Serious: Yes (Death, Hospitalization)
  Sender: FDA-Public Use
  Company Number: US-ROCHE-691985

PATIENT
  Age: 65 Year
  Sex: Male
  Weight: 82 kg

DRUGS (1)
  1. BLINDED BEVACIZUMAB [Suspect]
     Indication: GLIOBLASTOMA MULTIFORME
     Dosage: FREQUENCY: INTRAVENOUS OVER 30-90 MINTUES ON DAY 1 AND 15.
     Route: 042
     Dates: start: 20100211, end: 20100310

REACTIONS (5)
  - DECREASED APPETITE [None]
  - DISEASE PROGRESSION [None]
  - HYPONATRAEMIA [None]
  - MUSCULAR WEAKNESS [None]
  - SOMNOLENCE [None]
